FAERS Safety Report 8529656-9 (Version None)
Quarter: 2012Q3

REPORT INFORMATION
  Report Type: 
  Country: None (occurrence: None)
  Receive Date: 20120723
  Receipt Date: 20120710
  Transmission Date: 20120928
  Serious: Yes (Hospitalization)
  Sender: FDA-Public Use
  Company Number: JP-VERTEX PHARMACEUTICALS INC.-AE-2012-010398

PATIENT
  Age: 56 Year
  Sex: Male

DRUGS (8)
  1. TELAVIC (TELAPREVIR) [Suspect]
     Indication: HEPATITIS C
     Route: 048
     Dates: start: 20120404, end: 20120611
  2. TELAVIC (TELAPREVIR) [Suspect]
     Route: 048
     Dates: start: 20120612, end: 20120625
  3. RIBAVIRIN [Concomitant]
     Indication: HEPATITIS C
     Route: 048
     Dates: start: 20120404, end: 20120417
  4. PEGINTERFERON ALFA-2B [Concomitant]
     Route: 058
  5. PEGINTERFERON ALFA-2B [Concomitant]
     Indication: HEPATITIS C
     Route: 058
     Dates: start: 20120404
  6. RIBAVIRIN [Concomitant]
     Route: 048
     Dates: start: 20120418, end: 20120423
  7. RIBAVIRIN [Concomitant]
     Route: 048
     Dates: start: 20120501
  8. RIBAVIRIN [Concomitant]
     Route: 048
     Dates: start: 20120424, end: 20120430

REACTIONS (1)
  - HEPATIC FUNCTION ABNORMAL [None]
